FAERS Safety Report 8731070 (Version 2)
Quarter: 2012Q4

REPORT INFORMATION
  Report Type: 
  Country: US (occurrence: US)
  Receive Date: 20120820
  Receipt Date: 20121012
  Transmission Date: 20130627
  Serious: Yes (Hospitalization)
  Sender: FDA-Public Use
  Company Number: US-BIOGENIDEC-2012BI030323

PATIENT
  Age: 61 Year
  Sex: Female

DRUGS (1)
  1. AVONEX [Suspect]
     Indication: MULTIPLE SCLEROSIS
     Route: 030
     Dates: start: 19980107

REACTIONS (5)
  - Clostridium difficile infection [Recovered/Resolved]
  - Upper limb fracture [Recovered/Resolved]
  - Blood pressure decreased [Recovered/Resolved]
  - Fracture delayed union [Unknown]
  - Dermatitis allergic [Recovered/Resolved]
